FAERS Safety Report 8820028 (Version 1)
Quarter: 2012Q4

REPORT INFORMATION
  Report Type: 
  Country: ES (occurrence: ES)
  Receive Date: 20121001
  Receipt Date: 20121001
  Transmission Date: 20130627
  Serious: Yes (Hospitalization, Other)
  Sender: FDA-Public Use
  Company Number: ES-ELI_LILLY_AND_COMPANY-ES201209006034

PATIENT
  Age: 71 Year
  Sex: Male

DRUGS (6)
  1. ZYPREXA [Suspect]
     Dosage: 10 mg, unknown
     Route: 048
     Dates: start: 201203, end: 20120407
  2. OMEPRAZOL [Concomitant]
     Indication: PROPHYLAXIS
     Dosage: 20 mg, qd
     Route: 048
     Dates: end: 20120407
  3. ESCITALOPRAM [Interacting]
     Indication: DEPRESSION
     Dosage: 10 mg, qd
     Route: 048
  4. DEPRAX (TRAZODONE HYDROCHLORIDE) [Interacting]
     Indication: ANXIETY
     Dosage: 20 mg, qd
     Route: 048
  5. SINEMET-PLUS [Interacting]
     Indication: PARKINSON^S DISEASE
     Dosage: 100 mg, qd
     Route: 048
  6. STELARA [Concomitant]
     Indication: PSORIASIS
     Dosage: 1 DF, unknown

REACTIONS (2)
  - Acute psychosis [Recovered/Resolved]
  - Drug interaction [Unknown]
